FAERS Safety Report 25494739 (Version 1)
Quarter: 2025Q2

REPORT INFORMATION
  Report Type: Spontaneous
  Country: US (occurrence: None)
  Receive Date: 20250628
  Receipt Date: 20250628
  Transmission Date: 20250716
  Serious: No
  Sender: FDA-CTU
  Company Number: None

PATIENT
  Age: 76 Year
  Sex: Male
  Weight: 81.1 kg

DRUGS (4)
  1. DARATUMUMAB\HYALURONIDASE-FIHJ [Suspect]
     Active Substance: DARATUMUMAB\HYALURONIDASE-FIHJ
  2. DEXAMETHASONE [Suspect]
     Active Substance: DEXAMETHASONE
  3. LENALIDOMIDE [Suspect]
     Active Substance: LENALIDOMIDE
  4. VELCADE [Suspect]
     Active Substance: BORTEZOMIB

REACTIONS (1)
  - Malignant melanoma stage I [None]

NARRATIVE: CASE EVENT DATE: 20240229
